FAERS Safety Report 22089383 (Version 1)
Quarter: 2023Q1

REPORT INFORMATION
  Report Type: Spontaneous
  Country: US (occurrence: None)
  Receive Date: 20230311
  Receipt Date: 20230311
  Transmission Date: 20230418
  Serious: Yes (Hospitalization, Other)
  Sender: FDA-Public Use
  Company Number: None

PATIENT
  Age: 56 Year
  Sex: Female
  Weight: 53.1 kg

DRUGS (3)
  1. FASLODEX [Suspect]
     Active Substance: FULVESTRANT
     Indication: Breast cancer metastatic
     Dosage: OTHER FREQUENCY : EVERY 28 DAYS;?
     Route: 030
     Dates: start: 20220202, end: 20230207
  2. VIMPAT [Concomitant]
     Active Substance: LACOSAMIDE
  3. ALBUTEROL [Concomitant]
     Active Substance: ALBUTEROL

REACTIONS (3)
  - Infusion related reaction [None]
  - Bronchospasm [None]
  - Asthma [None]

NARRATIVE: CASE EVENT DATE: 20230207
